FAERS Safety Report 6551516-3 (Version None)
Quarter: 2010Q1

REPORT INFORMATION
  Report Type: 
  Country: None (occurrence: None)
  Receive Date: 20100126
  Receipt Date: 20100122
  Transmission Date: 20100710
  Serious: Yes (Hospitalization)
  Sender: FDA-Public Use
  Company Number: FR-SANOFI-AVENTIS-2010SA003931

PATIENT
  Age: 14 Year
  Sex: Female

DRUGS (7)
  1. RIFADIN [Suspect]
     Route: 042
     Dates: start: 20091120, end: 20091127
  2. TARDYFERON /GFR/ [Concomitant]
     Indication: DRUG USE FOR UNKNOWN INDICATION
  3. ACTISKENAN [Concomitant]
     Indication: DRUG USE FOR UNKNOWN INDICATION
  4. ATARAX [Concomitant]
     Indication: DRUG USE FOR UNKNOWN INDICATION
  5. LOVENOX [Concomitant]
     Indication: DRUG USE FOR UNKNOWN INDICATION
  6. DUPHALAC /NET/ [Concomitant]
     Indication: DRUG USE FOR UNKNOWN INDICATION
  7. OFLOCET [Concomitant]
     Route: 065
     Dates: start: 20091120

REACTIONS (2)
  - CHOLESTASIS [None]
  - CYTOLYTIC HEPATITIS [None]
